FAERS Safety Report 21023988 (Version 5)
Quarter: 2022Q3

REPORT INFORMATION
  Report Type: Spontaneous
  Country: DK (occurrence: DK)
  Receive Date: 20220629
  Receipt Date: 20220826
  Transmission Date: 20221026
  Serious: Yes (Life-Threatening, Hospitalization, Other)
  Sender: FDA-Public Use
  Company Number: DK-NOVARTISPH-NVSC2022DK147567

PATIENT
  Age: 51 Year
  Sex: Male

DRUGS (9)
  1. OXAZEPAM [Suspect]
     Active Substance: OXAZEPAM
     Indication: Sedation
     Dosage: 15 MG
     Route: 065
  2. ZOLPIDEM [Suspect]
     Active Substance: ZOLPIDEM TARTRATE
     Indication: Sedation
     Dosage: 10 MG
     Route: 065
  3. QUAZEPAM [Suspect]
     Active Substance: QUAZEPAM
     Indication: Sedation
     Dosage: 15 MG
     Route: 065
  4. FLUNITRAZEPAM [Suspect]
     Active Substance: FLUNITRAZEPAM
     Indication: Sedation
     Dosage: 2 MG
     Route: 065
  5. ETIZOLAM [Suspect]
     Active Substance: ETIZOLAM
     Indication: Sedation
     Dosage: 0.5 MG
     Route: 065
  6. CLOXAZOLAM [Suspect]
     Active Substance: CLOXAZOLAM
     Indication: Sedation
     Dosage: 2 MG
     Route: 065
  7. MELATONIN [Concomitant]
     Active Substance: MELATONIN
     Indication: Sedation
     Dosage: 2 MG
     Route: 065
  8. SERTRALINE HYDROCHLORIDE [Concomitant]
     Active Substance: SERTRALINE HYDROCHLORIDE
     Indication: Sedation
     Dosage: 100 MG
     Route: 065
  9. MIANSERIN [Concomitant]
     Active Substance: MIANSERIN
     Indication: Sedation
     Dosage: 10 MG
     Route: 065

REACTIONS (7)
  - Delirium [Recovered/Resolved]
  - Drug withdrawal syndrome [Recovered/Resolved]
  - Restlessness [Recovered/Resolved]
  - Withdrawal syndrome [Recovered/Resolved]
  - Disorientation [Recovering/Resolving]
  - Delusion [Recovering/Resolving]
  - Psychotic symptom [Recovered/Resolved]
